FAERS Safety Report 9352245 (Version 1)
Quarter: 2013Q2

REPORT INFORMATION
  Report Type: Spontaneous
  Country: US (occurrence: US)
  Receive Date: 20130617
  Receipt Date: 20130617
  Transmission Date: 20140414
  Serious: Yes (Other)
  Sender: FDA-Public Use
  Company Number: CHPA2013US009901

PATIENT
  Age: 84 Year
  Sex: Female

DRUGS (1)
  1. VOLTAREN GEL [Suspect]
     Dosage: UNK, APPLIED IT FOUR TIMES
     Route: 061
     Dates: start: 20130613, end: 20130614

REACTIONS (3)
  - Disorientation [Unknown]
  - Malaise [Unknown]
  - Hypoaesthesia [Unknown]
